FAERS Safety Report 8363500-8 (Version None)
Quarter: 2012Q1

REPORT INFORMATION
  Report Type: 
  Country: None (occurrence: None)
  Receive Date: 20120323
  Receipt Date: 20110621
  Transmission Date: 20120608
  Serious: Yes (Other)
  Sender: FDA-Public Use
  Company Number: 163-21880-11052184

PATIENT
  Age: 69 Year
  Sex: Female
  Weight: 76.2043 kg

DRUGS (13)
  1. ZOLOFT [Concomitant]
  2. OXYCODONE HYDROCHLORIDE [Concomitant]
  3. VALIUM [Concomitant]
  4. ASPIRIN [Concomitant]
  5. STOOL SOFTENER (DOCUSATE SODIUM) [Concomitant]
  6. NEXIUM [Concomitant]
  7. NOVOLIN R [Concomitant]
  8. LANTUS [Concomitant]
  9. COMPAZINE [Concomitant]
  10. REVLIMID [Suspect]
     Indication: MULTIPLE MYELOMA
     Dosage: 25 MG, QD, PO
     Route: 048
     Dates: start: 20101105, end: 20101110
  11. DECADRON [Concomitant]
  12. BENADRYL [Concomitant]
  13. OXYGEN (OXYGEN) [Concomitant]

REACTIONS (1)
  - DIARRHOEA HAEMORRHAGIC [None]
